FAERS Safety Report 4544287-3 (Version None)
Quarter: 2005Q1

REPORT INFORMATION
  Report Type: 
  Country: None (occurrence: None)
  Receive Date: 20050104
  Receipt Date: 20041020
  Transmission Date: 20050727
  Serious: Yes (Hospitalization)
  Sender: FDA-Public Use
  Company Number: US-AMGEN-US096625

PATIENT
  Age: 52 Year
  Sex: Female

DRUGS (8)
  1. PROCRIT [Suspect]
     Indication: RENAL FAILURE CHRONIC
     Dates: start: 20041014
  2. LEVAQUIN [Concomitant]
  3. COUMADIN [Concomitant]
  4. ZOFRAN [Concomitant]
  5. BENADRYL [Concomitant]
  6. SOLU-MEDROL [Concomitant]
  7. TYLENOL [Concomitant]
  8. ATARAX [Concomitant]

REACTIONS (17)
  - ANOREXIA [None]
  - ATOPY [None]
  - CONJUNCTIVITIS [None]
  - DYSPHAGIA [None]
  - ERYTHEMA [None]
  - FACE OEDEMA [None]
  - FATIGUE [None]
  - HYPERAESTHESIA [None]
  - HYPERSENSITIVITY [None]
  - LETHARGY [None]
  - NAUSEA [None]
  - PYREXIA [None]
  - RASH [None]
  - TENDERNESS [None]
  - THINKING ABNORMAL [None]
  - VISUAL ACUITY REDUCED [None]
  - WHITE BLOOD CELL COUNT INCREASED [None]
